FAERS Safety Report 4364249-9 (Version None)
Quarter: 2004Q2

REPORT INFORMATION
  Report Type: 
  Country: None (occurrence: None)
  Receive Date: 20040525
  Receipt Date: 20040514
  Transmission Date: 20050107
  Serious: Yes (Hospitalization)
  Sender: FDA-Public Use
  Company Number: GB-MERCK-0405GBR00122

PATIENT

DRUGS (1)
  1. SINGULAIR [Suspect]
     Route: 048
     Dates: start: 20040101

REACTIONS (1)
  - ALLERGIC GRANULOMATOUS ANGIITIS [None]
